FAERS Safety Report 24932840 (Version 1)
Quarter: 2025Q1

REPORT INFORMATION
  Report Type: Report from Study
  Country: CA (occurrence: CA)
  Receive Date: 20250205
  Receipt Date: 20250205
  Transmission Date: 20250409
  Serious: Yes (Other)
  Sender: ABBVIE
  Company Number: CA-ABBVIE-6115990

PATIENT
  Age: 22 Year
  Sex: Male

DRUGS (1)
  1. RINVOQ [Suspect]
     Active Substance: UPADACITINIB
     Indication: Crohn^s disease
     Dosage: STRENGTH : 30 MG
     Route: 048
     Dates: start: 20231229

REACTIONS (2)
  - Ileal stenosis [Unknown]
  - Enteritis [Unknown]

NARRATIVE: CASE EVENT DATE: 20241013
